FAERS Safety Report 22536963 (Version 1)
Quarter: 2023Q2

REPORT INFORMATION
  Report Type: Spontaneous
  Country: US (occurrence: None)
  Receive Date: 20230606
  Receipt Date: 20230606
  Transmission Date: 20230721
  Serious: Yes (Other)
  Sender: FDA-Public Use
  Company Number: None

PATIENT
  Age: 16 Year
  Sex: Female

DRUGS (2)
  1. XOLAIR [Suspect]
     Active Substance: OMALIZUMAB
     Indication: Product used for unknown indication
     Dosage: 150 MG/ML SUBCUTANEOUS??INJECT 2 SYRINGES UNDER THE SKIN (SUBCUTANEOUS INJECTION) EVERY 4 WEEKS ALON
     Route: 058
     Dates: start: 20230228
  2. XOLAIR [Suspect]
     Active Substance: OMALIZUMAB
     Indication: Product used for unknown indication
     Dosage: 75MG/0.5ML SUBCUTANEOUS? ?
     Route: 058
     Dates: start: 20230228

REACTIONS (1)
  - Hypersensitivity [None]

NARRATIVE: CASE EVENT DATE: 20230505
